FAERS Safety Report 5294358-1 (Version None)
Quarter: 2007Q1

REPORT INFORMATION
  Report Type: 
  Country: None (occurrence: None)
  Receive Date: 20061213
  Receipt Date: 20050701
  Transmission Date: 20070707
  Serious: No
  Sender: FDA-Public Use
  Company Number: 2005UW09935

PATIENT
  Age: 9 Year
  Sex: Male

DRUGS (2)
  1. SEROQUEL [Suspect]
  2. CONCERTA [Concomitant]

REACTIONS (1)
  - SUICIDE ATTEMPT [None]
